FAERS Safety Report 13047826 (Version 3)
Quarter: 2017Q3

REPORT INFORMATION
  Report Type: Spontaneous
  Country: US (occurrence: US)
  Receive Date: 20161220
  Receipt Date: 20170919
  Transmission Date: 20171127
  Serious: No
  Sender: FDA-Public Use
  Company Number: US-ALLERGAN-1672548US

PATIENT
  Age: 36 Year
  Sex: Female
  Weight: 78.5 kg

DRUGS (1)
  1. LILETTA [Suspect]
     Active Substance: LEVONORGESTREL
     Indication: PRODUCT USED FOR UNKNOWN INDICATION
     Dosage: 52 MG
     Route: 015
     Dates: start: 20160907, end: 20161011

REACTIONS (2)
  - Device difficult to use [Unknown]
  - Device expulsion [Unknown]

NARRATIVE: CASE EVENT DATE: 20161011
